FAERS Safety Report 5234616-X (Version None)
Quarter: 2007Q1

REPORT INFORMATION
  Report Type: 
  Country: None (occurrence: None)
  Receive Date: 20070209
  Receipt Date: 20070130
  Transmission Date: 20070707
  Serious: No
  Sender: FDA-Public Use
  Company Number: FI-BAXTER-2006BH014412

PATIENT
  Age: 42 Year
  Sex: Female

DRUGS (2)
  1. IMMUNE GLOBULIN INTRAVENOUS (HUMAN) [Suspect]
     Indication: HYPOGAMMAGLOBULINAEMIA
     Route: 042
     Dates: start: 20061023, end: 20061023
  2. IMMUNE GLOBULIN INTRAVENOUS (HUMAN) [Suspect]
     Route: 042
     Dates: start: 20061023, end: 20061023

REACTIONS (5)
  - BLOOD PRESSURE IMMEASURABLE [None]
  - DIZZINESS [None]
  - PALLOR [None]
  - PYREXIA [None]
  - RESPIRATORY RATE INCREASED [None]
